FAERS Safety Report 13921347 (Version 4)
Quarter: 2020Q1

REPORT INFORMATION
  Report Type: Spontaneous
  Country: US (occurrence: US)
  Receive Date: 20170830
  Receipt Date: 20200323
  Transmission Date: 20200409
  Serious: Yes (Other)
  Sender: FDA-Public Use
  Company Number: US-PFIZER INC-2017369720

PATIENT
  Age: 33 Year
  Sex: Male

DRUGS (1)
  1. DILANTIN [Suspect]
     Active Substance: PHENYTOIN
     Dosage: 300 MG, DAILY (TAKE TWO IN THE MORNING AND ONE IN THE EVENING)
     Dates: start: 20160817

REACTIONS (8)
  - Sinus disorder [Unknown]
  - Pain in extremity [Unknown]
  - Hypersensitivity [Unknown]
  - Weight decreased [Unknown]
  - Fall [Unknown]
  - Seizure [Unknown]
  - Arthralgia [Unknown]
  - Sleep disorder [Unknown]

NARRATIVE: CASE EVENT DATE: 2017
